FAERS Safety Report 8932871 (Version 7)
Quarter: 2014Q1

REPORT INFORMATION
  Report Type: Report from Study
  Country: DE (occurrence: DE)
  Receive Date: 20121128
  Receipt Date: 20140313
  Transmission Date: 20141002
  Serious: Yes (Death, Hospitalization, Other)
  Sender: FDA-Public Use
  Company Number: DE-OTSUKA-EU-2012-10205

PATIENT
  Sex: Male
  Weight: 54 kg

DRUGS (30)
  1. SAMSCA [Suspect]
     Indication: INAPPROPRIATE ANTIDIURETIC HORMONE SECRETION
     Dosage: 15 MG MILLIGRAM(S), DAILY DOSE
     Route: 048
     Dates: start: 20120222, end: 20120222
  2. SAMSCA [Suspect]
     Dosage: 15 MG MILLIGRAM(S), DAILY DOSE
     Route: 048
     Dates: start: 20120224, end: 20120224
  3. SAMSCA [Suspect]
     Dosage: 15 MG MILLIGRAM(S), DAILY DOSE
     Route: 048
     Dates: start: 20120227, end: 20120402
  4. SAMSCA [Suspect]
     Dosage: 15 MG MILLIGRAM(S), BIW
     Route: 048
     Dates: start: 20120402, end: 20120410
  5. SAMSCA [Suspect]
     Dosage: 15 MG MILLIGRAM(S), DAILY DOSE
     Route: 048
     Dates: start: 20120411, end: 20120412
  6. SAMSCA [Suspect]
     Dosage: 7.5 MG MILLIGRAM(S), DAILY DOSE
     Route: 048
     Dates: start: 20120413, end: 20120416
  7. SAMSCA [Suspect]
     Dosage: 15 MG MILLIGRAM(S), DAILY DOSE
     Route: 048
     Dates: start: 20120417, end: 20120524
  8. SAMSCA [Suspect]
     Dosage: 30 MG MILLIGRAM(S), DAILY DOSE
     Route: 048
     Dates: start: 20120525, end: 20120529
  9. SAMSCA [Suspect]
     Dosage: 15 MG MILLIGRAM(S), DAILY DOSE
     Route: 048
     Dates: start: 20120530, end: 20120613
  10. SAMSCA [Suspect]
     Dosage: 30 MG MILLIGRAM(S), DAILY DOSE
     Route: 048
     Dates: start: 20120614, end: 20120902
  11. SAMSCA [Suspect]
     Dosage: 30 MG MILLIGRAM(S), QOD
     Route: 048
     Dates: start: 20120903, end: 20120912
  12. SAMSCA [Suspect]
     Dosage: 45 MG MILLIGRAM(S), QOD
     Route: 048
     Dates: start: 20120903, end: 20120912
  13. SAMSCA [Suspect]
     Dosage: 45 MG MILLIGRAM(S), DAILY DOSE
     Route: 048
     Dates: start: 20120913, end: 20130527
  14. PANTOPRAZOLE [Concomitant]
     Indication: GASTRITIS
     Dosage: 80 MG MILLIGRAM(S), DAILY DOSE
     Route: 050
     Dates: start: 20110905
  15. BISOPROLOL [Concomitant]
     Indication: TACHYCARDIA
     Dosage: 2.5 MG MILLIGRAM(S), DAILY DOSE
     Route: 050
     Dates: start: 20110904, end: 201206
  16. BISOPROLOL [Concomitant]
     Indication: CORONARY ARTERY DISEASE
     Dosage: 5 MG MILLIGRAM(S), DAILY DOSE
     Route: 050
     Dates: start: 201206, end: 20120910
  17. ASS [Concomitant]
     Indication: CORONARY ARTERY DISEASE
     Dosage: 100 MG MILLIGRAM(S), DAILY DOSE
     Route: 050
     Dates: start: 20120610
  18. IDEOS [Concomitant]
     Indication: OSTEOPOROSIS PROPHYLAXIS
     Dosage: 1 DF DOSAGE FORM, DAILY DOSE
     Route: 050
     Dates: start: 201206
  19. TORASEMIDE [Concomitant]
     Indication: BLOOD POTASSIUM INCREASED
     Dosage: 5 MG MILLIGRAM(S), DAILY DOSE
     Route: 050
     Dates: start: 20120402, end: 20120529
  20. TORASEMIDE [Concomitant]
     Dosage: 5 MG MILLIGRAM(S), DAILY DOSE
     Route: 048
     Dates: start: 20120715, end: 20120824
  21. DUROGESIC [Concomitant]
     Indication: TUMOUR PAIN
     Dosage: 25 ?G MICROGRAM(S), UNKNOWN
     Route: 003
     Dates: start: 200605
  22. SPIRIVA [Concomitant]
     Indication: CHRONIC OBSTRUCTIVE PULMONARY DISEASE
     Dosage: 18 ?G MICROGRAM(S), DAILY DOSE
     Route: 055
     Dates: start: 20110910
  23. OXIS [Concomitant]
     Indication: CHRONIC OBSTRUCTIVE PULMONARY DISEASE
     Dosage: 12 ?G MICROGRAM(S), DAILY DOSE
     Route: 055
     Dates: start: 201206
  24. ENOXAPARIN [Concomitant]
     Indication: CHEST PAIN
     Dosage: 80 MG MILLIGRAM(S), DAILY DOSE
     Route: 058
     Dates: start: 20120608, end: 20120623
  25. ENOXAPARIN [Concomitant]
     Dosage: 40 MG MILLIGRAM(S), DAILY DOSE
     Route: 058
     Dates: start: 20120624, end: 20120628
  26. BISOPROLOL [Concomitant]
     Indication: TACHYCARDIA
     Dosage: 10 MG MILLIGRAM(S), DAILY DOSE
     Route: 048
     Dates: start: 20120911
  27. BISOPROLOL [Concomitant]
     Indication: ATRIAL FIBRILLATION
  28. FUROSEMID [Concomitant]
     Indication: BLOOD POTASSIUM INCREASED
     Dosage: 40 MG MILLIGRAM(S), DAILY DOSE
     Route: 048
     Dates: start: 20120926, end: 20121001
  29. FUROSEMID [Concomitant]
     Indication: OEDEMA
     Dosage: 60 MG MILLIGRAM(S), DAILY DOSE
     Route: 048
     Dates: start: 20121002
  30. FERROSANOL [Concomitant]
     Indication: BLOOD IRON DECREASED
     Dosage: 100 MG MILLIGRAM(S), DAILY DOSE
     Route: 048
     Dates: start: 201209

REACTIONS (30)
  - Pharyngeal haemorrhage [Fatal]
  - Chronic obstructive pulmonary disease [Recovered/Resolved]
  - Sepsis [Recovered/Resolved]
  - Loss of consciousness [Recovered/Resolved]
  - Pneumonia [Recovered/Resolved]
  - Chronic obstructive pulmonary disease [Recovered/Resolved]
  - Blood sodium decreased [Recovered/Resolved]
  - Blood sodium decreased [Recovered/Resolved]
  - Blood sodium decreased [Recovered/Resolved]
  - Blood sodium decreased [Recovered/Resolved]
  - Blood sodium decreased [Recovered/Resolved]
  - Agitation [Recovered/Resolved]
  - Hepatic enzyme increased [Recovered/Resolved]
  - Hypervolaemia [Recovered/Resolved]
  - Nausea [Recovered/Resolved]
  - Infection [Recovered/Resolved]
  - Tachycardia [Recovered/Resolved]
  - Muscle spasms [Recovered/Resolved]
  - White blood cell count increased [Recovered/Resolved]
  - Hypothyroidism [Recovered/Resolved]
  - Chronic obstructive pulmonary disease [Recovered/Resolved]
  - Chest pain [Recovered/Resolved]
  - Pruritus [Recovered/Resolved]
  - Blood iron decreased [Not Recovered/Not Resolved]
  - Constipation [Recovered/Resolved]
  - Hyperkalaemia [Recovered/Resolved]
  - Hyperkalaemia [Recovered/Resolved]
  - Hyperkalaemia [Recovered/Resolved]
  - Wrong technique in drug usage process [Unknown]
  - Incorrect drug administration rate [Unknown]
